FAERS Safety Report 9693321 (Version 2)
Quarter: 2014Q1

REPORT INFORMATION
  Report Type: Report from Study
  Country: CA (occurrence: CA)
  Receive Date: 20131118
  Receipt Date: 20140213
  Transmission Date: 20141002
  Serious: Yes (Other)
  Sender: FDA-Public Use
  Company Number: CA-ROCHE-1303208

PATIENT
  Age: 43 Year
  Sex: Male

DRUGS (2)
  1. PEGASYS [Suspect]
     Indication: CHRONIC HEPATITIS C
     Route: 058
     Dates: start: 20130815, end: 20131216
  2. COPEGUS [Suspect]
     Indication: CHRONIC HEPATITIS C
     Dosage: 42 TABLETS/WEEK
     Route: 048
     Dates: start: 20130815

REACTIONS (6)
  - Rash pruritic [Not Recovered/Not Resolved]
  - Pain in extremity [Unknown]
  - Skin fissures [Unknown]
  - Haemorrhage [Unknown]
  - Alopecia [Unknown]
  - Weight decreased [Unknown]
